FAERS Safety Report 18399516 (Version 1)
Quarter: 2020Q4

REPORT INFORMATION
  Report Type: Spontaneous
  Country: HR (occurrence: HR)
  Receive Date: 20201019
  Receipt Date: 20201019
  Transmission Date: 20210114
  Serious: Yes (Other)
  Sender: FDA-Public Use
  Company Number: HR-ASTRAZENECA-2020SF32653

PATIENT
  Age: 70 Year
  Sex: Female

DRUGS (3)
  1. QUETIAPINE. [Suspect]
     Active Substance: QUETIAPINE
     Route: 048
     Dates: start: 202009, end: 202009
  2. ALVENTA [Suspect]
     Active Substance: VENLAFAXINE HYDROCHLORIDE
     Route: 048
     Dates: start: 202009, end: 202009
  3. HELEX [Suspect]
     Active Substance: ALPRAZOLAM
     Route: 048
     Dates: start: 202009, end: 202009

REACTIONS (5)
  - Hypotension [Unknown]
  - Loss of consciousness [Unknown]
  - Coma [Unknown]
  - Suicide attempt [Unknown]
  - Bradycardia [Unknown]

NARRATIVE: CASE EVENT DATE: 202009
